FAERS Safety Report 5995613-X (Version None)
Quarter: 2008Q4

REPORT INFORMATION
  Report Type: 
  Country: None (occurrence: None)
  Receive Date: 20081212
  Receipt Date: 20081002
  Transmission Date: 20090506
  Serious: No
  Sender: FDA-Public Use
  Company Number: US-ABBOTT-08P-163-0479432-00

PATIENT
  Sex: Male
  Weight: 65.83 kg

DRUGS (6)
  1. HUMIRA [Suspect]
     Indication: CROHN'S DISEASE
     Route: 058
     Dates: start: 20080917, end: 20080917
  2. HUMIRA [Suspect]
     Route: 058
  3. PATASA [Concomitant]
     Indication: CROHN'S DISEASE
  4. FLUOXETINE [Concomitant]
     Indication: DEPRESSION
  5. ENTECORT [Concomitant]
     Indication: CROHN'S DISEASE
  6. IRON [Concomitant]
     Indication: CROHN'S DISEASE

REACTIONS (2)
  - NAUSEA [None]
  - THIRST [None]
